FAERS Safety Report 11051856 (Version 5)
Quarter: 2023Q2

REPORT INFORMATION
  Report Type: Report from Study
  Country: US (occurrence: US)
  Receive Date: 20150421
  Receipt Date: 20230609
  Transmission Date: 20230721
  Serious: Yes (Other)
  Sender: FDA-Public Use
  Company Number: US-ACORDA-ACO_110746_2015

PATIENT
  Age: 62 Year
  Sex: Female

DRUGS (4)
  1. AMPYRA [Suspect]
     Active Substance: DALFAMPRIDINE
     Indication: Multiple sclerosis
     Dosage: 10 MG, BID
     Route: 048
     Dates: start: 20150204
  2. AMPYRA [Suspect]
     Active Substance: DALFAMPRIDINE
     Dosage: 10 MG, BID
     Route: 048
     Dates: start: 2012
  3. DALFAMPRIDINE [Suspect]
     Active Substance: DALFAMPRIDINE
     Indication: Multiple sclerosis
     Dosage: 10 MILLIGRAM, Q 12 HRS
     Route: 048
  4. GILENYA [Suspect]
     Active Substance: FINGOLIMOD HYDROCHLORIDE
     Indication: Product used for unknown indication
     Dosage: UNK
     Route: 065

REACTIONS (10)
  - Basal cell carcinoma [Unknown]
  - Joint injury [Not Recovered/Not Resolved]
  - Arthralgia [Unknown]
  - Ligament rupture [Unknown]
  - Nerve injury [Not Recovered/Not Resolved]
  - Abdominal discomfort [Unknown]
  - Accident [Not Recovered/Not Resolved]
  - Medication error [Recovered/Resolved]
  - Back pain [Unknown]
  - Balance disorder [Not Recovered/Not Resolved]

NARRATIVE: CASE EVENT DATE: 20160501
